FAERS Safety Report 17696186 (Version 3)
Quarter: 2025Q1

REPORT INFORMATION
  Report Type: Spontaneous
  Country: US (occurrence: US)
  Receive Date: 20200423
  Receipt Date: 20250303
  Transmission Date: 20250409
  Serious: Yes (Other)
  Sender: PURDUE
  Company Number: US-NAPPMUNDI-USA-2020-0151080

PATIENT
  Sex: Female

DRUGS (4)
  1. OXYCONTIN [Suspect]
     Active Substance: OXYCODONE HYDROCHLORIDE
     Indication: Product used for unknown indication
     Route: 048
  2. HYDROCODONE BITARTRATE AND ACETAMINOPHEN [Suspect]
     Active Substance: ACETAMINOPHEN\HYDROCODONE BITARTRATE
     Indication: Product used for unknown indication
     Route: 048
  3. OXYCODONE HYDROCHLORIDE [Suspect]
     Active Substance: OXYCODONE HYDROCHLORIDE
     Indication: Product used for unknown indication
     Route: 048
  4. ACETAMINOPHEN\OXYCODONE HYDROCHLORIDE [Suspect]
     Active Substance: ACETAMINOPHEN\OXYCODONE HYDROCHLORIDE
     Indication: Product used for unknown indication
     Route: 048

REACTIONS (2)
  - Drug dependence [Unknown]
  - Impaired quality of life [Unknown]
